FAERS Safety Report 10037384 (Version 2)
Quarter: 2014Q2

REPORT INFORMATION
  Report Type: Report from Study
  Country: IL (occurrence: IL)
  Receive Date: 20140326
  Receipt Date: 20140407
  Transmission Date: 20141212
  Serious: Yes (Disabling)
  Sender: FDA-Public Use
  Company Number: IL-SA-2014SA033589

PATIENT
  Age: 66 Year
  Sex: Male

DRUGS (6)
  1. LANTUS [Suspect]
     Indication: PRODUCT USED FOR UNKNOWN INDICATION
     Dosage: 42 UNITS IN EVENING DOSE:42 UNIT(S)
     Route: 065
     Dates: start: 2006
  2. NORMITEN [Concomitant]
     Indication: HYPERTENSION
  3. VASODIP [Concomitant]
  4. CADEX [Concomitant]
  5. LORIVAN [Concomitant]
  6. HUMALOG [Concomitant]

REACTIONS (1)
  - Visual impairment [Not Recovered/Not Resolved]
